FAERS Safety Report 23462271 (Version 1)
Quarter: 2024Q1

REPORT INFORMATION
  Report Type: Spontaneous
  Country: US (occurrence: US)
  Receive Date: 20240131
  Receipt Date: 20240131
  Transmission Date: 20240409
  Serious: Yes (Hospitalization, Other)
  Sender: FDA-Public Use
  Company Number: US-TAKEDA-2024TUS008848

PATIENT
  Sex: Female

DRUGS (14)
  1. NATPARA (PARATHYROID HORMONE) [Suspect]
     Active Substance: PARATHYROID HORMONE
     Indication: Post procedural hypoparathyroidism
     Dosage: 75 MICROGRAM, QD
     Route: 058
     Dates: start: 20160801, end: 2019
  2. NATPARA (PARATHYROID HORMONE) [Suspect]
     Active Substance: PARATHYROID HORMONE
     Indication: Post procedural hypoparathyroidism
     Dosage: 75 MICROGRAM, QD
     Route: 058
     Dates: start: 20160801, end: 2019
  3. NATPARA (PARATHYROID HORMONE) [Suspect]
     Active Substance: PARATHYROID HORMONE
     Indication: Post procedural hypoparathyroidism
     Dosage: 75 MICROGRAM, QD
     Route: 058
     Dates: start: 20160801, end: 2019
  4. NATPARA (PARATHYROID HORMONE) [Suspect]
     Active Substance: PARATHYROID HORMONE
     Indication: Hypocalcaemia
  5. NATPARA (PARATHYROID HORMONE) [Suspect]
     Active Substance: PARATHYROID HORMONE
     Indication: Hypocalcaemia
  6. NATPARA (PARATHYROID HORMONE) [Suspect]
     Active Substance: PARATHYROID HORMONE
     Indication: Hypocalcaemia
  7. CALCIUM [Suspect]
     Active Substance: CALCIUM
     Indication: Post procedural hypoparathyroidism
     Dosage: 3500 MILLIGRAM, QD
     Route: 065
  8. CALCIUM [Suspect]
     Active Substance: CALCIUM
     Indication: Hypocalcaemia
  9. CALCITRIOL [Suspect]
     Active Substance: CALCITRIOL
     Indication: Post procedural hypoparathyroidism
     Dosage: 4 DOSAGE FORM, BID
     Route: 065
  10. CALCITRIOL [Suspect]
     Active Substance: CALCITRIOL
     Indication: Hypocalcaemia
  11. VITAMIN D3 [Suspect]
     Active Substance: CHOLECALCIFEROL
     Indication: Post procedural hypoparathyroidism
     Dosage: 8 DOSAGE FORM, QD
     Route: 065
  12. VITAMIN D3 [Suspect]
     Active Substance: CHOLECALCIFEROL
     Indication: Hypocalcaemia
  13. VITAMIN D2 [Suspect]
     Active Substance: ERGOCALCIFEROL
     Indication: Post procedural hypoparathyroidism
     Dosage: 50000 INTERNATIONAL UNIT, 3/WEEK
     Route: 065
  14. VITAMIN D2 [Suspect]
     Active Substance: ERGOCALCIFEROL
     Indication: Hypocalcaemia

REACTIONS (3)
  - Intestinal obstruction [Recovering/Resolving]
  - Hypocalcaemia [Unknown]
  - Recalled product [Unknown]

NARRATIVE: CASE EVENT DATE: 20190101
